FAERS Safety Report 25126177 (Version 1)
Quarter: 2025Q1

REPORT INFORMATION
  Report Type: Spontaneous
  Country: US (occurrence: US)
  Receive Date: 20250326
  Receipt Date: 20250326
  Transmission Date: 20250408
  Serious: No
  Sender: ABBVIE
  Company Number: US-ABBVIE-6187257

PATIENT
  Age: 67 Year
  Sex: Female

DRUGS (2)
  1. ARMOUR THYROID [Suspect]
     Active Substance: THYROID, PORCINE
     Indication: Autoimmune thyroiditis
     Route: 048
  2. SYNTHROID [Suspect]
     Active Substance: LEVOTHYROXINE SODIUM
     Indication: Product used for unknown indication
     Route: 048

REACTIONS (9)
  - Hypertension [Not Recovered/Not Resolved]
  - Off label use [Unknown]
  - Product odour abnormal [Unknown]
  - Atrial fibrillation [Unknown]
  - Expired product administered [Unknown]
  - Tri-iodothyronine decreased [Unknown]
  - Tri-iodothyronine increased [Unknown]
  - Malaise [Unknown]
  - Product physical issue [Unknown]

NARRATIVE: CASE EVENT DATE: 20250101
